FAERS Safety Report 4648630-6 (Version None)
Quarter: 2005Q2

REPORT INFORMATION
  Report Type: 
  Country: None (occurrence: None)
  Receive Date: 20050429
  Receipt Date: 20041021
  Transmission Date: 20051028
  Serious: No
  Sender: FDA-Public Use
  Company Number: US-GLAXOSMITHKLINE-A0530827A

PATIENT
  Age: 57 Year
  Sex: Female

DRUGS (2)
  1. AMERGE [Suspect]
     Indication: MIGRAINE
     Route: 048
  2. NO CONCURRENT MEDICATION [Concomitant]

REACTIONS (2)
  - METANEPHRINE URINE INCREASED [None]
  - NORMETANEPHRINE URINE INCREASED [None]
